FAERS Safety Report 16794092 (Version 1)
Quarter: 2019Q3

REPORT INFORMATION
  Report Type: Spontaneous
  Country: AU (occurrence: AU)
  Receive Date: 20190911
  Receipt Date: 20190911
  Transmission Date: 20191005
  Serious: Yes (Other)
  Sender: FDA-Public Use
  Company Number: AU-ACCORD-154362

PATIENT
  Age: 38 Year
  Sex: Male

DRUGS (12)
  1. PANTOPRAZOLE [Concomitant]
     Active Substance: PANTOPRAZOLE
  2. QUETIAPINE. [Suspect]
     Active Substance: QUETIAPINE
     Indication: PRODUCT USED FOR UNKNOWN INDICATION
  3. FISH OIL [Concomitant]
     Active Substance: FISH OIL
  4. NICOTINE. [Concomitant]
     Active Substance: NICOTINE
  5. SYMBICORT [Concomitant]
     Active Substance: BUDESONIDE\FORMOTEROL FUMARATE DIHYDRATE
  6. ENOXAPARIN [Concomitant]
     Active Substance: ENOXAPARIN
  7. DOCUSATE SODIUM/SENNOSIDE A+B [Concomitant]
  8. CITALOPRAM [Suspect]
     Active Substance: CITALOPRAM HYDROBROMIDE
     Indication: PRODUCT USED FOR UNKNOWN INDICATION
  9. CLOPINE [Suspect]
     Active Substance: CLOZAPINE
     Indication: PRODUCT USED FOR UNKNOWN INDICATION
  10. PALIPERIDONE/PALIPERIDONE PALMITATE [Suspect]
     Active Substance: PALIPERIDONE
     Indication: PRODUCT USED FOR UNKNOWN INDICATION
  11. LORAZEPAM. [Concomitant]
     Active Substance: LORAZEPAM
  12. THIAMINE. [Concomitant]
     Active Substance: THIAMINE

REACTIONS (17)
  - Hyperhidrosis [Unknown]
  - Urinary incontinence [Unknown]
  - Neuroleptic malignant syndrome [Unknown]
  - Dyskinesia [Unknown]
  - Body temperature abnormal [Unknown]
  - Delirium [Unknown]
  - Confusional state [Unknown]
  - Tremor [Unknown]
  - Muscle rigidity [Unknown]
  - Schizophrenia [Unknown]
  - Catatonia [Unknown]
  - Left ventricular hypertrophy [Unknown]
  - Slow response to stimuli [Unknown]
  - Tachycardia [Unknown]
  - Social avoidant behaviour [Unknown]
  - Agitation [Unknown]
  - Dystonia [Unknown]
